FAERS Safety Report 12486687 (Version 1)
Quarter: 2016Q2

REPORT INFORMATION
  Report Type: Spontaneous
  Country: US (occurrence: US)
  Receive Date: 20160621
  Receipt Date: 20160621
  Transmission Date: 20160815
  Serious: No
  Sender: FDA-Public Use
  Company Number: GXBR2016US001817

PATIENT
  Age: 49 Year
  Sex: Female

DRUGS (1)
  1. GLATOPA [Suspect]
     Active Substance: GLATIRAMER ACETATE
     Dosage: UNK DF, UNK
     Route: 065

REACTIONS (8)
  - Drug dose omission [Unknown]
  - Dyspnoea [Unknown]
  - Injection site erythema [Unknown]
  - Dizziness [Unknown]
  - Paraesthesia [Unknown]
  - Injection site pain [Unknown]
  - Chest discomfort [Unknown]
  - Product substitution issue [Unknown]

NARRATIVE: CASE EVENT DATE: 20151105
